FAERS Safety Report 6633295-4 (Version None)
Quarter: 2010Q1

REPORT INFORMATION
  Report Type: 
  Country: None (occurrence: None)
  Receive Date: 20100312
  Receipt Date: 20091013
  Transmission Date: 20100710
  Serious: No
  Sender: FDA-Public Use
  Company Number: US-ABBOTT-09P-163-0603050-00

PATIENT
  Sex: Male

DRUGS (1)
  1. ERYTHROCIN 1% [Suspect]
     Indication: DRUG USE FOR UNKNOWN INDICATION
     Dosage: TO TAKE THE 400ML BOTTLE OVER ONE MONTH
     Route: 048
     Dates: start: 20090901, end: 20091001

REACTIONS (1)
  - EXPIRED DRUG ADMINISTERED [None]
